FAERS Safety Report 6402736-X (Version None)
Quarter: 2009Q4

REPORT INFORMATION
  Report Type: 
  Country: None (occurrence: None)
  Receive Date: 20091013
  Receipt Date: 20091006
  Transmission Date: 20100525
  Serious: Yes (Other)
  Sender: FDA-Public Use
  Company Number: 2009SP014704

PATIENT
  Age: 53 Year
  Sex: Male

DRUGS (3)
  1. INTRON A [Suspect]
     Indication: HEPATITIS C
     Dates: start: 20090308
  2. REBETOL [Suspect]
     Indication: HEPATITIS C
     Dosage: 2 DF; TID; PO
     Route: 048
     Dates: start: 20090308
  3. SUBOXONE [Concomitant]

REACTIONS (9)
  - DEHYDRATION [None]
  - DISEASE RECURRENCE [None]
  - LOCALISED INFECTION [None]
  - NAUSEA [None]
  - PLATELET COUNT DECREASED [None]
  - PYREXIA [None]
  - RED BLOOD CELL COUNT DECREASED [None]
  - VOMITING [None]
  - WHITE BLOOD CELL COUNT DECREASED [None]
